FAERS Safety Report 6188676-2 (Version None)
Quarter: 2009Q2

REPORT INFORMATION
  Report Type: 
  Country: None (occurrence: None)
  Receive Date: 20090513
  Receipt Date: 20090504
  Transmission Date: 20091009
  Serious: Yes (Hospitalization)
  Sender: FDA-Public Use
  Company Number: US-WATSON-2009-02540

PATIENT
  Sex: Female
  Weight: 57.596 kg

DRUGS (2)
  1. ALLOPURINOL (WATSON LABORATORIES) [Suspect]
     Indication: DRUG USE FOR UNKNOWN INDICATION
     Dosage: UNK
     Route: 065
     Dates: start: 20090209, end: 20090216
  2. TREANDA [Suspect]
     Indication: CHRONIC LYMPHOCYTIC LEUKAEMIA
     Dosage: 100 MG/M2, Q 4 WEEKS (X 2 DAYS)
     Route: 042
     Dates: start: 20090209, end: 20090210

REACTIONS (5)
  - ASTHENIA [None]
  - PYREXIA [None]
  - RASH MACULO-PAPULAR [None]
  - STOMATITIS [None]
  - WEIGHT DECREASED [None]
